FAERS Safety Report 7784817-1 (Version None)
Quarter: 2011Q3

REPORT INFORMATION
  Report Type: 
  Country: None (occurrence: None)
  Receive Date: 20110928
  Receipt Date: 20110914
  Transmission Date: 20111222
  Serious: Yes (Hospitalization, Other)
  Sender: FDA-Public Use
  Company Number: IN-SANOFI-AVENTIS-2011SA060571

PATIENT
  Age: 32 Year
  Sex: Female

DRUGS (1)
  1. GLYBURIDE [Suspect]
     Route: 065

REACTIONS (6)
  - DISORIENTATION [None]
  - ALTERED STATE OF CONSCIOUSNESS [None]
  - HEMIPARESIS [None]
  - SOMNOLENCE [None]
  - HYPOGLYCAEMIA [None]
  - HYPOGLYCAEMIC ENCEPHALOPATHY [None]
